FAERS Safety Report 17717533 (Version 1)
Quarter: 2020Q2

REPORT INFORMATION
  Report Type: Spontaneous
  Country: CN (occurrence: CN)
  Receive Date: 20200428
  Receipt Date: 20200428
  Transmission Date: 20200714
  Serious: Yes (Death, Other)
  Sender: FDA-Public Use
  Company Number: CN-ROCHE-2587951

PATIENT
  Age: 70 Year
  Sex: Male

DRUGS (18)
  1. AVASTIN [Suspect]
     Active Substance: BEVACIZUMAB
     Dosage: 3 TIMES
     Route: 065
     Dates: start: 20180921, end: 2018
  2. OXALIPLATIN. [Concomitant]
     Active Substance: OXALIPLATIN
     Indication: COLON CANCER
     Dosage: XELOX REGIMEN 6 CYCLES
     Route: 065
     Dates: start: 20150605, end: 20150923
  3. TEGAFUR,GIMERACIL AND OTERACIL POTASSIUM [Concomitant]
     Active Substance: GIMERACIL\OTERACIL\TEGAFUR
     Dosage: 5 CYCLE
     Route: 065
     Dates: start: 20170629
  4. IRINOTECAN [Concomitant]
     Active Substance: IRINOTECAN
     Indication: COLON CANCER
     Dosage: 3 TIMES FOLFIRI REGIMEN
     Route: 065
     Dates: start: 20180921, end: 2018
  5. XELODA [Suspect]
     Active Substance: CAPECITABINE
     Indication: COLON CANCER
     Dosage: XELOX REGIMEN 6 CYCLES
     Route: 048
     Dates: start: 20150605, end: 20150923
  6. OXALIPLATIN. [Concomitant]
     Active Substance: OXALIPLATIN
     Dosage: 3 CYCLES
     Route: 065
     Dates: start: 20160702
  7. TEGAFUR,GIMERACIL AND OTERACIL POTASSIUM [Concomitant]
     Active Substance: GIMERACIL\OTERACIL\TEGAFUR
     Dosage: 2 CYCLE
     Route: 065
     Dates: start: 20170310
  8. AVASTIN [Suspect]
     Active Substance: BEVACIZUMAB
     Dosage: 3 CYCLE
     Route: 065
     Dates: start: 20180629
  9. TEGAFUR,GIMERACIL AND OTERACIL POTASSIUM [Concomitant]
     Active Substance: GIMERACIL\OTERACIL\TEGAFUR
     Indication: COLON CANCER
     Dosage: 3 CYCLES
     Route: 065
     Dates: start: 20160702
  10. OXALIPLATIN. [Concomitant]
     Active Substance: OXALIPLATIN
     Dosage: XELOX REGIMEN 3 CYCLE
     Route: 065
     Dates: start: 20180629
  11. TEGAFUR,GIMERACIL AND OTERACIL POTASSIUM [Concomitant]
     Active Substance: GIMERACIL\OTERACIL\TEGAFUR
     Dosage: 5 CYCLES
     Route: 065
     Dates: start: 20161011
  12. XELODA [Suspect]
     Active Substance: CAPECITABINE
     Dosage: 1 CYCLE
     Route: 048
     Dates: start: 20180530
  13. FLUOROURACIL. [Concomitant]
     Active Substance: FLUOROURACIL
     Indication: COLON CANCER
     Dosage: 3 TIMES FOLFIRI REGIMEN
     Route: 065
     Dates: start: 20180921, end: 2018
  14. CALCIUM FOLINATE [Concomitant]
     Active Substance: LEUCOVORIN CALCIUM
     Indication: COLON CANCER
     Dosage: 3 TIMES FOLFIRI REGIMEN
     Route: 065
     Dates: start: 20180921, end: 2018
  15. RALTITREXED [Concomitant]
     Active Substance: RALTITREXED
     Indication: COLON CANCER
     Dosage: 1 CYCLE
     Route: 065
     Dates: start: 20181228
  16. XELODA [Suspect]
     Active Substance: CAPECITABINE
     Dosage: 7 CYCLES
     Route: 048
     Dates: start: 20171110
  17. XELODA [Suspect]
     Active Substance: CAPECITABINE
     Dosage: XELOX REGIMEN 3 CYCLE
     Route: 048
     Dates: start: 20180629
  18. AVASTIN [Suspect]
     Active Substance: BEVACIZUMAB
     Indication: COLON CANCER
     Dosage: 1 CYCLE
     Route: 065
     Dates: start: 20180530

REACTIONS (4)
  - Jaundice cholestatic [Unknown]
  - Coma [Recovering/Resolving]
  - Disease progression [Fatal]
  - Muscular weakness [Unknown]

NARRATIVE: CASE EVENT DATE: 2018
